FAERS Safety Report 4375013-9 (Version None)
Quarter: 2004Q2

REPORT INFORMATION
  Report Type: 
  Country: None (occurrence: None)
  Receive Date: 20040604
  Receipt Date: 20040521
  Transmission Date: 20050107
  Serious: Yes (Other)
  Sender: FDA-Public Use
  Company Number: 2004-DE-03005GD

PATIENT
  Sex: Female

DRUGS (4)
  1. NEVIRAPINE(NEVIRAPINE) [Suspect]
     Indication: HIV INFECTION
  2. DIDANOSINE(DIDANOSINE) [Suspect]
     Indication: HIV INFECTION
  3. RITONAVIR(RITONAVIR) [Suspect]
     Indication: HIV INFECTION
  4. SAQUINAVIR(SAQUINAVIR) [Suspect]
     Indication: HIV INFECTION

REACTIONS (1)
  - DRUG INEFFECTIVE [None]
